FAERS Safety Report 10570857 (Version 1)
Quarter: 2014Q4

REPORT INFORMATION
  Report Type: Spontaneous
  Country: US (occurrence: US)
  Receive Date: 20141107
  Receipt Date: 20141107
  Transmission Date: 20150529
  Serious: Yes (Hospitalization)
  Sender: FDA-Public Use
  Company Number: PHHY2014US142462

PATIENT
  Age: 74 Year
  Sex: Female

DRUGS (2)
  1. NAFCILLIN [Suspect]
     Active Substance: NAFCILLIN\NAFCILLIN SODIUM
     Indication: STAPHYLOCOCCAL SKIN INFECTION
  2. NAFCILLIN [Suspect]
     Active Substance: NAFCILLIN\NAFCILLIN SODIUM
     Indication: OSTEOMYELITIS
     Route: 065

REACTIONS (2)
  - Allergic hepatitis [Recovered/Resolved]
  - Type IV hypersensitivity reaction [Recovered/Resolved]
